FAERS Safety Report 25112350 (Version 1)
Quarter: 2025Q1

REPORT INFORMATION
  Report Type: Spontaneous
  Country: US (occurrence: US)
  Receive Date: 20250324
  Receipt Date: 20250324
  Transmission Date: 20250409
  Serious: No
  Sender: UCB
  Company Number: US-UCBSA-2024032281

PATIENT
  Age: 9 Year
  Sex: Female

DRUGS (4)
  1. BRIVIACT [Suspect]
     Active Substance: BRIVARACETAM
     Indication: Product used for unknown indication
     Dosage: 60 MILLIGRAM, ONCE DAILY (QD)
     Dates: start: 20240301
  2. BRIVIACT [Suspect]
     Active Substance: BRIVARACETAM
     Dosage: 80 MILLIGRAM, ONCE DAILY (QD)
     Dates: start: 2024
  3. BRIVIACT [Suspect]
     Active Substance: BRIVARACETAM
     Dosage: 60 MILLIGRAM, ONCE DAILY (QD)
     Dates: start: 2024
  4. PROZAC [Concomitant]
     Active Substance: FLUOXETINE HYDROCHLORIDE
     Indication: Product used for unknown indication

REACTIONS (3)
  - Irritability [Not Recovered/Not Resolved]
  - Agitation [Not Recovered/Not Resolved]
  - Weight increased [Not Recovered/Not Resolved]

NARRATIVE: CASE EVENT DATE: 20240301
